FAERS Safety Report 16325073 (Version 1)
Quarter: 2019Q2

REPORT INFORMATION
  Report Type: Spontaneous
  Country: GB (occurrence: GB)
  Receive Date: 20190517
  Receipt Date: 20190517
  Transmission Date: 20190711
  Serious: Yes (Other)
  Sender: FDA-Public Use
  Company Number: GB-TEVA-2019-GB-1050444

PATIENT
  Age: 20 Year
  Sex: Male
  Weight: 29 kg

DRUGS (4)
  1. BECLOMETASONE [Concomitant]
     Active Substance: BECLOMETHASONE DIPROPIONATE
     Dosage: PUFFS.
     Dates: start: 20190208, end: 20190213
  2. ERYTHROMYCIN. [Concomitant]
     Active Substance: ERYTHROMYCIN
     Dosage: APPLY.
     Dates: start: 20180124
  3. TERBINAFINE. [Suspect]
     Active Substance: TERBINAFINE
     Dates: start: 20190208
  4. AMOXICILLIN. [Concomitant]
     Active Substance: AMOXICILLIN
     Dates: start: 20190129, end: 20190205

REACTIONS (1)
  - Depression [Recovering/Resolving]
